FAERS Safety Report 7232681-1 (Version None)
Quarter: 2011Q1

REPORT INFORMATION
  Report Type: 
  Country: None (occurrence: None)
  Receive Date: 20110107
  Receipt Date: 20101223
  Transmission Date: 20110831
  Serious: Yes (Hospitalization)
  Sender: FDA-Public Use
  Company Number: IT-1184497

PATIENT
  Age: 68 Year
  Sex: Male

DRUGS (4)
  1. LANSOPRAZOLE [Concomitant]
  2. TICLOPIDINA (TICLOPIDINE HYDROCHLORIDE) [Concomitant]
  3. VYTORIN [Concomitant]
  4. AZOPT [Suspect]
     Indication: GLAUCOMA
     Dosage: 2 GTT QD OPHTHALMIC
     Route: 047
     Dates: start: 20100215, end: 20100215

REACTIONS (1)
  - TREMOR [None]
